FAERS Safety Report 6757821-X (Version None)
Quarter: 2010Q2

REPORT INFORMATION
  Report Type: 
  Country: None (occurrence: None)
  Receive Date: 20100607
  Receipt Date: 20100526
  Transmission Date: 20101027
  Serious: Yes (Other)
  Sender: FDA-Public Use
  Company Number: PHHY2010US35006

PATIENT

DRUGS (1)
  1. FANAPT [Suspect]
     Dosage: UNK
     Route: 048

REACTIONS (1)
  - OCULOGYRIC CRISIS [None]
